FAERS Safety Report 5022123-9 (Version None)
Quarter: 2006Q2

REPORT INFORMATION
  Report Type: 
  Country: None (occurrence: None)
  Receive Date: 20060605
  Receipt Date: 20060310
  Transmission Date: 20061013
  Serious: Yes (Hospitalization, Other)
  Sender: FDA-Public Use
  Company Number: S06-ITA-02163-01

PATIENT
  Age: 55 Year
  Sex: Male

DRUGS (2)
  1. ESCITALOPRAM OXALATE [Suspect]
     Indication: DEPRESSION
     Dosage: 10 MG QOD PO
     Route: 048
     Dates: start: 20041201, end: 20060101
  2. DIAZEPAM [Concomitant]

REACTIONS (7)
  - BLOOD CREATINE PHOSPHOKINASE ABNORMAL [None]
  - CONDITION AGGRAVATED [None]
  - JOB DISSATISFACTION [None]
  - LOSS OF CONSCIOUSNESS [None]
  - MUSCLE SPASMS [None]
  - NEURALGIA [None]
  - SENSATION OF HEAVINESS [None]
